FAERS Safety Report 25360122 (Version 2)
Quarter: 2025Q2

REPORT INFORMATION
  Report Type: Report from Study
  Country: FR (occurrence: FR)
  Receive Date: 20250527
  Receipt Date: 20250626
  Transmission Date: 20250717
  Serious: Yes (Other)
  Sender: ABBVIE
  Company Number: FR-ABBVIE-6296335

PATIENT
  Age: 63 Year
  Sex: Male
  Weight: 125 kg

DRUGS (3)
  1. FOSCARBIDOPA\FOSLEVODOPA [Suspect]
     Active Substance: FOSCARBIDOPA\FOSLEVODOPA
     Indication: Parkinson^s disease
     Route: 058
     Dates: start: 20250425, end: 20250519
  2. SINEMET [Concomitant]
     Active Substance: CARBIDOPA\LEVODOPA
     Indication: Parkinson^s disease
     Route: 048
     Dates: start: 2023
  3. ODEFSEY [Concomitant]
     Active Substance: EMTRICITABINE\RILPIVIRINE HYDROCHLORIDE\TENOFOVIR ALAFENAMIDE FUMARATE
     Indication: HIV infection
     Dosage: DAILY
     Route: 048
     Dates: start: 2000

REACTIONS (3)
  - Condition aggravated [Not Recovered/Not Resolved]
  - Infusion site abscess [Recovered/Resolved]
  - Infusion site inflammation [Not Recovered/Not Resolved]

NARRATIVE: CASE EVENT DATE: 20250101
